FAERS Safety Report 6064302-8 (Version None)
Quarter: 2009Q1

REPORT INFORMATION
  Report Type: 
  Country: None (occurrence: None)
  Receive Date: 20090204
  Receipt Date: 20090127
  Transmission Date: 20090719
  Serious: Yes (Hospitalization)
  Sender: FDA-Public Use
  Company Number: JP-ASTRAZENECA-2008SE05517

PATIENT
  Age: 63 Year
  Sex: Female
  Weight: 56 kg

DRUGS (15)
  1. BLOPRESS [Suspect]
     Indication: CARDIAC FAILURE CHRONIC
     Route: 048
     Dates: start: 20070730, end: 20080225
  2. BLOPRESS [Suspect]
     Route: 048
     Dates: start: 20080226, end: 20080616
  3. BLOPRESS [Suspect]
     Route: 048
     Dates: start: 20080617
  4. ARTIST [Concomitant]
     Indication: CARDIAC FAILURE CHRONIC
     Route: 048
     Dates: start: 20070730, end: 20080129
  5. ARTIST [Concomitant]
     Route: 048
     Dates: start: 20080130, end: 20080616
  6. ARTIST [Concomitant]
     Route: 048
     Dates: start: 20080617
  7. LASIX [Concomitant]
     Indication: CARDIAC FAILURE CHRONIC
     Route: 048
     Dates: start: 20070731, end: 20070808
  8. LASIX [Concomitant]
     Route: 048
     Dates: start: 20070809, end: 20080117
  9. LASIX [Concomitant]
     Route: 048
     Dates: start: 20080118, end: 20080121
  10. LASIX [Concomitant]
     Route: 048
     Dates: start: 20080122
  11. LIPITOR [Concomitant]
     Indication: HYPERLIPIDAEMIA
     Route: 048
     Dates: start: 20070801
  12. ASPIRIN [Concomitant]
     Indication: ANGINA PECTORIS
     Route: 048
     Dates: start: 20070730
  13. ASPENON [Concomitant]
     Indication: SUPRAVENTRICULAR EXTRASYSTOLES
     Route: 048
     Dates: start: 20070801
  14. PANAPIDIN [Concomitant]
     Indication: ANGINA PECTORIS
     Route: 048
     Dates: start: 20070803
  15. KINEDAK [Concomitant]
     Indication: DIABETES MELLITUS
     Route: 048
     Dates: start: 20070809

REACTIONS (2)
  - CARDIAC FAILURE [None]
  - UPPER RESPIRATORY TRACT INFECTION [None]
